FAERS Safety Report 14558675 (Version 5)
Quarter: 2018Q3

REPORT INFORMATION
  Report Type: Spontaneous
  Country: US (occurrence: US)
  Receive Date: 20180221
  Receipt Date: 20180712
  Transmission Date: 20181010
  Serious: No
  Sender: FDA-Public Use
  Company Number: US-PFIZER INC-2018069605

PATIENT
  Age: 72 Year
  Sex: Female
  Weight: 62 kg

DRUGS (3)
  1. IBRANCE [Suspect]
     Active Substance: PALBOCICLIB
     Indication: BREAST CANCER FEMALE
     Dosage: 125 MG, UNK
     Route: 048
  2. IBRANCE [Suspect]
     Active Substance: PALBOCICLIB
     Dosage: 125 MG, CYCLIC (1/CAPSULE DAILY 1?21/DAYS)
     Route: 048
     Dates: start: 20170601, end: 201706
  3. IBRANCE [Suspect]
     Active Substance: PALBOCICLIB
     Dosage: 125 MG, CYCLIC (1/CAPSULE DAILY 1?21/DAYS)
     Route: 048
     Dates: start: 201706

REACTIONS (12)
  - Fall [Unknown]
  - Pain [Unknown]
  - Decreased appetite [Unknown]
  - Headache [Not Recovered/Not Resolved]
  - White blood cell count decreased [Unknown]
  - Balance disorder [Unknown]
  - Chills [Unknown]
  - Nasopharyngitis [Unknown]
  - Ear pain [Unknown]
  - Full blood count decreased [Unknown]
  - Rash [Unknown]
  - Constipation [Unknown]
